FAERS Safety Report 15407688 (Version 1)
Quarter: 2018Q3

REPORT INFORMATION
  Report Type: Spontaneous
  Country: IT (occurrence: IT)
  Receive Date: 20180920
  Receipt Date: 20180920
  Transmission Date: 20181010
  Serious: Yes (Hospitalization)
  Sender: FDA-Public Use
  Company Number: IT-TEVA-2018-IT-956677

PATIENT
  Age: 80 Year
  Sex: Male

DRUGS (12)
  1. COUMADIN [Concomitant]
     Active Substance: WARFARIN SODIUM
     Route: 065
  2. LASIX [Concomitant]
     Active Substance: FUROSEMIDE
     Route: 065
  3. CARDIOASPIRIN [Concomitant]
     Active Substance: ASPIRIN
     Route: 065
  4. GOLTOR [Concomitant]
     Route: 065
  5. AVODART [Concomitant]
     Active Substance: DUTASTERIDE
     Route: 065
  6. RAMIPRIL. [Suspect]
     Active Substance: RAMIPRIL
     Indication: HYPERTENSION
     Dosage: 5 MILLIGRAM DAILY;
     Route: 065
     Dates: start: 20180101, end: 20180501
  7. PLAVIX [Concomitant]
     Active Substance: CLOPIDOGREL BISULFATE
     Route: 065
  8. KANRENOL [Suspect]
     Active Substance: CANRENOATE POTASSIUM
     Indication: PRODUCT USED FOR UNKNOWN INDICATION
     Route: 065
     Dates: start: 20180101, end: 20180501
  9. VIPIDIA [Concomitant]
     Active Substance: ALOGLIPTIN BENZOATE
     Route: 065
  10. PEPTAZOL [Concomitant]
     Active Substance: PANTOPRAZOLE SODIUM
     Route: 065
  11. FULCRO [Concomitant]
     Active Substance: FENOFIBRATE
     Route: 065
  12. ZYLORIC [Concomitant]
     Active Substance: ALLOPURINOL
     Route: 065

REACTIONS (4)
  - Hyperkalaemia [Unknown]
  - Metabolic acidosis [Unknown]
  - Dyspnoea [Unknown]
  - Oliguria [Unknown]

NARRATIVE: CASE EVENT DATE: 20180501
